FAERS Safety Report 12992896 (Version 1)
Quarter: 2016Q4

REPORT INFORMATION
  Report Type: Other
  Country: IN (occurrence: IN)
  Receive Date: 20161202
  Receipt Date: 20161202
  Transmission Date: 20170207
  Serious: No
  Sender: FDA-Public Use
  Company Number: IN-LUPIN PHARMACEUTICALS INC.-2016-03941

PATIENT
  Age: 12 Year
  Sex: Female

DRUGS (1)
  1. BIMATOPROST OPHTHALMIC SOLUTION, 0.03% [Suspect]
     Active Substance: BIMATOPROST
     Indication: SKIN LESION
     Route: 061

REACTIONS (1)
  - Hypertrichosis [Unknown]
